FAERS Safety Report 18442929 (Version 4)
Quarter: 2020Q4

REPORT INFORMATION
  Report Type: Report from Study
  Country: CO (occurrence: CO)
  Receive Date: 20201029
  Receipt Date: 20201224
  Transmission Date: 20210114
  Serious: Yes (Hospitalization, Other)
  Sender: FDA-Public Use
  Company Number: PHHY2018CO093298

PATIENT
  Sex: Male
  Weight: 68 kg

DRUGS (5)
  1. TASIGNA [Suspect]
     Active Substance: NILOTINIB
     Dosage: 800 MG, QD
     Route: 048
     Dates: end: 20180816
  2. TASIGNA [Suspect]
     Active Substance: NILOTINIB
     Dosage: UNK
     Route: 065
     Dates: start: 20190429
  3. TASIGNA [Suspect]
     Active Substance: NILOTINIB
     Indication: CHRONIC MYELOID LEUKAEMIA
     Dosage: 400 MG, BID
     Route: 048
     Dates: start: 20180619
  4. TASIGNA [Suspect]
     Active Substance: NILOTINIB
     Indication: SPLENOMEGALY
     Dosage: 400 MG, BID
     Route: 048
     Dates: start: 20180719
  5. VITAMIN B12 [Concomitant]
     Active Substance: CYANOCOBALAMIN
     Indication: LEUKAEMIA
     Dosage: UNK
     Route: 065

REACTIONS (15)
  - Asthenia [Unknown]
  - Headache [Unknown]
  - Pain [Unknown]
  - Pallor [Recovered/Resolved]
  - Decreased immune responsiveness [Unknown]
  - Spinal pain [Unknown]
  - Dizziness [Recovered/Resolved]
  - Splenitis [Unknown]
  - Splenomegaly [Unknown]
  - Decreased appetite [Unknown]
  - Inappropriate schedule of product administration [Unknown]
  - Haemoglobin decreased [Recovered/Resolved]
  - General physical health deterioration [Unknown]
  - Ill-defined disorder [Not Recovered/Not Resolved]
  - Blood disorder [Unknown]
